FAERS Safety Report 16514853 (Version 6)
Quarter: 2023Q2

REPORT INFORMATION
  Report Type: Spontaneous
  Country: US (occurrence: US)
  Receive Date: 20190702
  Receipt Date: 20230515
  Transmission Date: 20230721
  Serious: Yes (Other)
  Sender: FDA-Public Use
  Company Number: US-PFIZER INC-2018477176

PATIENT
  Age: 71 Year
  Sex: Female

DRUGS (3)
  1. XELJANZ [Suspect]
     Active Substance: TOFACITINIB CITRATE
     Indication: Arthritis
     Dosage: 5 MG
     Dates: end: 2019
  2. XELJANZ [Suspect]
     Active Substance: TOFACITINIB CITRATE
     Dosage: 5 MG, 2X/DAY
  3. XELJANZ [Suspect]
     Active Substance: TOFACITINIB CITRATE
     Dosage: 5 MG (60 TAB BOTTLE)

REACTIONS (6)
  - Psoriatic arthropathy [Unknown]
  - Illness [Recovering/Resolving]
  - Depression [Unknown]
  - Fibromyalgia [Unknown]
  - Body height abnormal [Unknown]
  - Pain [Unknown]

NARRATIVE: CASE EVENT DATE: 20190101
